FAERS Safety Report 8386415 (Version 4)
Quarter: 2014Q4

REPORT INFORMATION
  Report Type: Spontaneous
  Country: US (occurrence: None)
  Receive Date: 20111221
  Receipt Date: 20141224
  Transmission Date: 20150529
  Serious: Yes (Hospitalization)
  Sender: FDA-Public Use
  Company Number: PHHY2010US18365

PATIENT
  Age: 48 Year
  Sex: Male
  Weight: 94.3 kg

DRUGS (2)
  1. EXJADE [Suspect]
     Active Substance: DEFERASIROX
     Indication: SICKLE CELL ANAEMIA
     Dosage: 2000 MG DAILY, ORAL
     Route: 048
  2. EXJADE [Suspect]
     Active Substance: DEFERASIROX
     Indication: THALASSAEMIA
     Dosage: 2000 MG DAILY, ORAL
     Route: 048

REACTIONS (4)
  - Sickle cell anaemia [None]
  - Malaise [None]
  - Sickle cell anaemia with crisis [None]
  - Pain [None]
